FAERS Safety Report 19507017 (Version 2)
Quarter: 2021Q3

REPORT INFORMATION
  Report Type: Spontaneous
  Country: US (occurrence: US)
  Receive Date: 20210708
  Receipt Date: 20210810
  Transmission Date: 20211014
  Serious: No
  Sender: FDA-Public Use
  Company Number: US-ASTRAZENECA-2021A552131

PATIENT
  Age: 17704 Day
  Sex: Female

DRUGS (1)
  1. BYDUREON BCISE [Suspect]
     Active Substance: EXENATIDE
     Indication: DIABETES MELLITUS
     Route: 058
     Dates: start: 202005

REACTIONS (8)
  - Wrong technique in product usage process [Unknown]
  - Device leakage [Unknown]
  - Incorrect dose administered by product [Unknown]
  - Device use issue [Unknown]
  - Weight increased [Unknown]
  - Weight fluctuation [Unknown]
  - Appetite disorder [Unknown]
  - Weight decreased [Unknown]

NARRATIVE: CASE EVENT DATE: 20210619
